FAERS Safety Report 16416617 (Version 2)
Quarter: 2019Q2

REPORT INFORMATION
  Report Type: Spontaneous
  Country: US (occurrence: US)
  Receive Date: 20190611
  Receipt Date: 20190628
  Transmission Date: 20190711
  Serious: Yes (Hospitalization)
  Sender: FDA-Public Use
  Company Number: US-CELGENEUS-USA-20190602881

PATIENT
  Age: 3 Year
  Sex: Male

DRUGS (12)
  1. CELEBREX [Concomitant]
     Active Substance: CELECOXIB
     Indication: NEOPLASM
     Dosage: 100 MILLIGRAM
     Route: 065
     Dates: start: 20190307
  2. ZOFRAN [Concomitant]
     Active Substance: ONDANSETRON HYDROCHLORIDE
     Indication: NAUSEA
     Route: 065
  3. CYTOXAN [Concomitant]
     Active Substance: CYCLOPHOSPHAMIDE
     Indication: NEOPLASM
     Dosage: 40 MILLIGRAM
     Route: 065
     Dates: start: 20190307
  4. THALOMID [Suspect]
     Active Substance: THALIDOMIDE
     Indication: PRODUCT USE ISSUE
  5. THALOMID [Suspect]
     Active Substance: THALIDOMIDE
     Indication: BRAIN NEOPLASM MALIGNANT
     Dosage: 50 MILLIGRAM
     Route: 048
     Dates: start: 20190307
  6. FENOFIBRATE. [Concomitant]
     Active Substance: FENOFIBRATE
     Indication: PRODUCT USED FOR UNKNOWN INDICATION
     Dosage: 54 MILLIGRAM
     Route: 065
     Dates: start: 20190307
  7. ETOPOSIDE. [Concomitant]
     Active Substance: ETOPOSIDE
     Indication: NEOPLASM
     Dosage: 32 MILLIGRAM
     Route: 065
     Dates: start: 20190307
  8. THALOMID [Suspect]
     Active Substance: THALIDOMIDE
     Indication: OFF LABEL USE
     Dosage: 50 MILLIGRAM
     Route: 048
     Dates: start: 20190514
  9. BACTRIM [Concomitant]
     Active Substance: SULFAMETHOXAZOLE\TRIMETHOPRIM
     Indication: ANTIFUNGAL PROPHYLAXIS
     Dosage: 20 MILLILITER
     Route: 065
     Dates: start: 20190307
  10. MIRALAX [Concomitant]
     Active Substance: POLYETHYLENE GLYCOL 3350
     Indication: CONSTIPATION
     Route: 065
  11. SENNA [Concomitant]
     Active Substance: SENNA LEAF\SENNOSIDES\SENNOSIDES A AND B
     Indication: CONSTIPATION
     Route: 065
  12. COLACE [Concomitant]
     Active Substance: DOCUSATE SODIUM
     Indication: CONSTIPATION
     Route: 065

REACTIONS (1)
  - Neutropenia [Recovered/Resolved]

NARRATIVE: CASE EVENT DATE: 20190531
